FAERS Safety Report 8247064-5 (Version None)
Quarter: 2012Q1

REPORT INFORMATION
  Report Type: 
  Country: None (occurrence: None)
  Receive Date: 20120330
  Receipt Date: 20120319
  Transmission Date: 20120608
  Serious: Yes (Other)
  Sender: FDA-Public Use
  Company Number: FR-ROCHE-1050580

PATIENT
  Age: 74 Year
  Sex: Male

DRUGS (1)
  1. HERCEPTIN [Suspect]
     Indication: PANCREATIC CARCINOMA

REACTIONS (1)
  - DEVICE OCCLUSION [None]
